FAERS Safety Report 6971082-8 (Version None)
Quarter: 2010Q3

REPORT INFORMATION
  Report Type: 
  Country: None (occurrence: None)
  Receive Date: 20100903
  Receipt Date: 20100827
  Transmission Date: 20110219
  Serious: Yes (Hospitalization)
  Sender: FDA-Public Use
  Company Number: 2010SP023663

PATIENT
  Age: 69 Year
  Sex: Male

DRUGS (14)
  1. REMERON [Suspect]
     Indication: DEPRESSION
     Dosage: SEE IMAGE
     Route: 048
     Dates: start: 20091029, end: 20091108
  2. REMERON [Suspect]
     Indication: DEPRESSION
     Dosage: SEE IMAGE
     Route: 048
     Dates: start: 20091109, end: 20091111
  3. REMERON [Suspect]
     Indication: DEPRESSION
     Dosage: SEE IMAGE
     Route: 048
     Dates: start: 20091112, end: 20100207
  4. REMERON [Suspect]
     Indication: DEPRESSION
     Dosage: SEE IMAGE
     Route: 048
     Dates: start: 20100208, end: 20100317
  5. REMERON [Suspect]
     Indication: DEPRESSION
     Dosage: SEE IMAGE
     Route: 048
     Dates: start: 20100318, end: 20100324
  6. REMERON [Suspect]
     Indication: DEPRESSION
     Dosage: SEE IMAGE
     Route: 048
     Dates: start: 20100325, end: 20100331
  7. REMERON [Suspect]
     Indication: DEPRESSION
     Dosage: SEE IMAGE
     Route: 048
     Dates: start: 20100412, end: 20100421
  8. REMERON [Suspect]
     Indication: DEPRESSION
     Dosage: SEE IMAGE
     Route: 048
     Dates: start: 20100422, end: 20100425
  9. ZYPREXA [Suspect]
     Indication: IRRITABILITY
     Dosage: 5 MG; PO;  10 MG; PO
     Route: 048
     Dates: start: 20100225, end: 20100228
  10. ZYPREXA [Suspect]
     Indication: IRRITABILITY
     Dosage: 5 MG; PO;  10 MG; PO
     Route: 048
     Dates: start: 20100301, end: 20100407
  11. ZYPREXA [Suspect]
     Indication: IRRITABILITY
     Dosage: 5 MG; PO;  10 MG; PO
     Route: 048
     Dates: start: 20100408, end: 20100419
  12. ZYPREXA [Suspect]
     Indication: IRRITABILITY
     Dosage: 5 MG; PO;  10 MG; PO
     Route: 048
     Dates: start: 20100420, end: 20100426
  13. ROHYPNOL [Concomitant]
  14. MEILAX [Concomitant]

REACTIONS (8)
  - BLOOD CREATINE INCREASED [None]
  - BLOOD UREA INCREASED [None]
  - COMMUNICATION DISORDER [None]
  - DELIRIUM [None]
  - DIZZINESS [None]
  - DYSSTASIA [None]
  - IRRITABILITY [None]
  - PANCYTOPENIA [None]
